FAERS Safety Report 6759122-2 (Version None)
Quarter: 2010Q2

REPORT INFORMATION
  Report Type: 
  Country: None (occurrence: None)
  Receive Date: 20100607
  Receipt Date: 20100509
  Transmission Date: 20101027
  Serious: Yes (Hospitalization, Other)
  Sender: FDA-Public Use
  Company Number: AU-ROCHE-707367

PATIENT
  Age: 37 Year
  Sex: Female

DRUGS (2)
  1. PEGASYS [Suspect]
     Indication: HEPATITIS C
     Route: 065
  2. CITALOPRAM [Concomitant]

REACTIONS (14)
  - ABDOMINAL PAIN [None]
  - COLITIS ULCERATIVE [None]
  - CONFUSIONAL STATE [None]
  - DISORIENTATION [None]
  - DIZZINESS [None]
  - EPIGASTRIC DISCOMFORT [None]
  - ERYTHEMA [None]
  - GRAND MAL CONVULSION [None]
  - HYPERTENSION [None]
  - ILL-DEFINED DISORDER [None]
  - RASH [None]
  - SENSORY DISTURBANCE [None]
  - SOMNOLENCE [None]
  - VASCULITIS [None]
